FAERS Safety Report 26073496 (Version 1)
Quarter: 2025Q4

REPORT INFORMATION
  Report Type: Spontaneous
  Country: US (occurrence: US)
  Receive Date: 20251121
  Receipt Date: 20251121
  Transmission Date: 20260118
  Serious: No
  Sender: STRIDES
  Company Number: US-MLMSERVICE-20250602-PI528417-00150-1

PATIENT
  Age: 19 Year
  Sex: Female

DRUGS (24)
  1. ACYCLOVIR [Suspect]
     Active Substance: ACYCLOVIR
     Indication: Rash
     Dosage: UNK
     Route: 065
  2. TRIAMCINOLONE ACETONIDE [Suspect]
     Active Substance: TRIAMCINOLONE ACETONIDE
     Indication: Drug reaction with eosinophilia and systemic symptoms
     Dosage: UNK
     Route: 061
  3. HYDROXYZINE HYDROCHLORIDE [Suspect]
     Active Substance: HYDROXYZINE HYDROCHLORIDE
     Indication: Drug reaction with eosinophilia and systemic symptoms
     Dosage: 50 MILLIGRAM
     Route: 065
  4. FLUCONAZOLE [Concomitant]
     Active Substance: FLUCONAZOLE
     Indication: Coccidioidomycosis
     Dosage: 400 MILLIGRAM, QD
     Route: 065
  5. POSACONAZOLE [Concomitant]
     Active Substance: POSACONAZOLE
     Indication: Coccidioidomycosis
     Dosage: 300 MILLIGRAM, SINGLE DOSE
     Route: 065
  6. HYDROCORTISONE [Concomitant]
     Active Substance: HYDROCORTISONE
     Indication: Angioedema
     Dosage: 195 MILLIGRAM
     Route: 065
  7. HYDROCORTISONE [Concomitant]
     Active Substance: HYDROCORTISONE
     Indication: Hypersensitivity
  8. METHYLPREDNISOLONE [Concomitant]
     Active Substance: METHYLPREDNISOLONE
     Indication: Angioedema
     Dosage: 50 MILLIGRAM
     Route: 042
  9. METHYLPREDNISOLONE [Concomitant]
     Active Substance: METHYLPREDNISOLONE
     Indication: Hypersensitivity
     Dosage: 6 DOSAGE FORM, SIX TABLETS ON DAY 1
     Route: 048
  10. METHYLPREDNISOLONE [Concomitant]
     Active Substance: METHYLPREDNISOLONE
     Indication: Drug reaction with eosinophilia and systemic symptoms
     Dosage: 5 DOSAGE FORM, FIVE TABLETS ON DAY 2
     Route: 048
  11. METHYLPREDNISOLONE [Concomitant]
     Active Substance: METHYLPREDNISOLONE
     Dosage: 4 DOSAGE FORM, FOUR TABLETS ON DAY 3
     Route: 048
  12. METHYLPREDNISOLONE [Concomitant]
     Active Substance: METHYLPREDNISOLONE
     Dosage: 3 DOSAGE FORM, THREE TABLETS ON DAY 4
     Route: 048
  13. METHYLPREDNISOLONE [Concomitant]
     Active Substance: METHYLPREDNISOLONE
     Dosage: 2 DOSAGE FORM, TWO TABLETS ON DAY 5
  14. METHYLPREDNISOLONE [Concomitant]
     Active Substance: METHYLPREDNISOLONE
     Dosage: 4 MILLIGRAM, ONE TABLET ON DAY 6
     Route: 048
  15. DIPHENHYDRAMINE [Concomitant]
     Active Substance: DIPHENHYDRAMINE
     Indication: Rash
     Dosage: UNK
     Route: 065
  16. DIPHENHYDRAMINE [Concomitant]
     Active Substance: DIPHENHYDRAMINE
     Indication: Angioedema
     Dosage: 50 MILLIGRAM
     Route: 030
  17. DIPHENHYDRAMINE [Concomitant]
     Active Substance: DIPHENHYDRAMINE
     Indication: Hypersensitivity
     Dosage: 50 MILLIGRAM
     Route: 065
  18. DIPHENHYDRAMINE [Concomitant]
     Active Substance: DIPHENHYDRAMINE
     Indication: Drug reaction with eosinophilia and systemic symptoms
  19. PREDNISOLONE [Concomitant]
     Active Substance: PREDNISOLONE
     Indication: Angioedema
     Dosage: 50 MILLIGRAM
     Route: 065
  20. PREDNISOLONE [Concomitant]
     Active Substance: PREDNISOLONE
     Indication: Hypersensitivity
  21. EPINEPHRINE [Concomitant]
     Active Substance: EPINEPHRINE
     Indication: Angioedema
     Dosage: 0.3 MILLIGRAM
     Route: 042
  22. EPINEPHRINE [Concomitant]
     Active Substance: EPINEPHRINE
     Indication: Hypersensitivity
     Dosage: 0.3 MILLIGRAM
     Route: 030
  23. EPINEPHRINE [Concomitant]
     Active Substance: EPINEPHRINE
     Dosage: 0.3 MILLIGRAM
     Route: 030
  24. EPINEPHRINE [Concomitant]
     Active Substance: EPINEPHRINE
     Dosage: 0.3 MILLIGRAM
     Route: 042

REACTIONS (2)
  - Off label use [Unknown]
  - Treatment noncompliance [Unknown]
